FAERS Safety Report 8061559-9 (Version None)
Quarter: 2012Q1

REPORT INFORMATION
  Report Type: 
  Country: None (occurrence: None)
  Receive Date: 20120121
  Receipt Date: 20120117
  Transmission Date: 20120608
  Serious: Yes (Other)
  Sender: FDA-Public Use
  Company Number: US-AMGEN-USASP2012003448

PATIENT
  Sex: Male

DRUGS (2)
  1. XGEVA [Suspect]
     Dosage: UNK
     Route: 042
     Dates: start: 20120117
  2. XGEVA [Suspect]
     Indication: PRODUCT USED FOR UNKNOWN INDICATION
     Dosage: UNK

REACTIONS (1)
  - INCORRECT ROUTE OF DRUG ADMINISTRATION [None]
